FAERS Safety Report 21352544 (Version 1)
Quarter: 2022Q3

REPORT INFORMATION
  Report Type: Spontaneous
  Country: None (occurrence: US)
  Receive Date: 20220920
  Receipt Date: 20220920
  Transmission Date: 20221027
  Serious: Yes (Hospitalization)
  Sender: FDA-Public Use
  Company Number: US-Oxford Pharmaceuticals, LLC-2132998

PATIENT
  Age: 67 Year
  Sex: Male

DRUGS (6)
  1. SERTRALINE HYDROCHLORIDE [Suspect]
     Active Substance: SERTRALINE HYDROCHLORIDE
     Indication: Erectile dysfunction
  2. BUPROPION [Suspect]
     Active Substance: BUPROPION
  3. TAMSULOSIN [Concomitant]
     Active Substance: TAMSULOSIN
  4. ASPIRIN [Concomitant]
     Active Substance: ASPIRIN
  5. ACETAMINOPHEN, DIPHENHYDRAMINE [Concomitant]
  6. SILDENAFIL [Concomitant]
     Active Substance: SILDENAFIL

REACTIONS (4)
  - Off label use [Recovering/Resolving]
  - Mania [Recovering/Resolving]
  - Drug interaction [Recovering/Resolving]
  - Withdrawal syndrome [Recovering/Resolving]
